FAERS Safety Report 8862790 (Version 1)
Quarter: 2012Q4

REPORT INFORMATION
  Report Type: 
  Country: US (occurrence: US)
  Receive Date: 20121026
  Receipt Date: 20121026
  Transmission Date: 20130627
  Serious: Yes (Hospitalization)
  Sender: FDA-Public Use
  Company Number: US-VERTEX PHARMACEUTICAL INC.-2012-023399

PATIENT
  Age: 29 None
  Sex: Female

DRUGS (7)
  1. INCIVEK [Suspect]
     Indication: HEPATITIS C
     Dosage: 750 mg, tid
     Route: 048
     Dates: start: 20120811
  2. RIBAVIRIN [Suspect]
     Indication: HEPATITIS C
     Dosage: 5 DF, bid
     Route: 048
     Dates: start: 20120711, end: 20120916
  3. RIBAVIRIN [Suspect]
     Dosage: 4 DF, bid
     Route: 048
     Dates: start: 20120916
  4. PEGINTERFERON [Suspect]
     Indication: HEPATITIS C
     Dosage: 180 ?g, qw
     Route: 058
     Dates: start: 20120711, end: 20120916
  5. PEGINTERFERON [Suspect]
     Dosage: 135 ?g, qw
     Route: 058
     Dates: start: 20121010
  6. LASIX                              /00032601/ [Concomitant]
     Indication: CARDIAC DISORDER
     Dosage: UNK
     Dates: end: 20120916
  7. LASIX                              /00032601/ [Concomitant]
     Dosage: 10 mg, qd
     Dates: start: 20120916

REACTIONS (6)
  - Loss of consciousness [Not Recovered/Not Resolved]
  - Dizziness [Not Recovered/Not Resolved]
  - White blood cell count decreased [Not Recovered/Not Resolved]
  - Drug dose omission [Recovered/Resolved]
  - Red blood cell count decreased [Not Recovered/Not Resolved]
  - Platelet count decreased [Not Recovered/Not Resolved]
